FAERS Safety Report 15916326 (Version 1)
Quarter: 2019Q1

REPORT INFORMATION
  Report Type: Spontaneous
  Country: US (occurrence: US)
  Receive Date: 20190205
  Receipt Date: 20190205
  Transmission Date: 20190417
  Serious: Yes (Other)
  Sender: FDA-Public Use
  Company Number: None

PATIENT
  Age: 43 Year
  Sex: Female
  Weight: 117.9 kg

DRUGS (2)
  1. CHANTIX [Suspect]
     Active Substance: VARENICLINE TARTRATE
     Indication: EX-TOBACCO USER
     Dosage: ?          QUANTITY:53 TABLET(S);?
     Route: 048
     Dates: start: 20190118, end: 20190204
  2. CENTRUM VITAMINS [Concomitant]

REACTIONS (4)
  - Swelling face [None]
  - Swollen tongue [None]
  - Throat tightness [None]
  - Dysphonia [None]

NARRATIVE: CASE EVENT DATE: 20190204
